FAERS Safety Report 18332761 (Version 1)
Quarter: 2020Q3

REPORT INFORMATION
  Report Type: Spontaneous
  Country: DE (occurrence: DE)
  Receive Date: 20200930
  Receipt Date: 20200930
  Transmission Date: 20201103
  Serious: Yes (Death, Hospitalization, Other)
  Sender: FDA-Public Use
  Company Number: DE-009507513-2009DEU009484

PATIENT
  Age: 78 Year

DRUGS (2)
  1. PEMETREXED DISODIUM [Suspect]
     Active Substance: PEMETREXED DISODIUM
     Indication: ADENOCARCINOMA
     Dosage: GIVEN TWICE
     Dates: start: 201706, end: 201707
  2. PEMBROLIZUMAB. [Suspect]
     Active Substance: PEMBROLIZUMAB
     Indication: ADENOCARCINOMA
     Dosage: 4 CYCLES
     Dates: start: 201611, end: 201701

REACTIONS (5)
  - Malignant neoplasm progression [Unknown]
  - Chest pain [Unknown]
  - Cachexia [Unknown]
  - Metastases to lymph nodes [Unknown]
  - Death [Fatal]

NARRATIVE: CASE EVENT DATE: 201702
